FAERS Safety Report 22182714 (Version 1)
Quarter: 2023Q2

REPORT INFORMATION
  Report Type: Spontaneous
  Country: US (occurrence: None)
  Receive Date: 20230406
  Receipt Date: 20230406
  Transmission Date: 20230721
  Serious: Yes (Hospitalization)
  Sender: FDA-Public Use
  Company Number: None

PATIENT
  Age: 63 Year
  Sex: Male

DRUGS (1)
  1. CAPECITABINE [Suspect]
     Active Substance: CAPECITABINE
     Dosage: FREQUENCY : TWICE A DAY;?
     Route: 048

REACTIONS (6)
  - Cardiac disorder [None]
  - Taste disorder [None]
  - Skin hyperpigmentation [None]
  - Blood cholesterol increased [None]
  - Hypertension [None]
  - Off label use [None]

NARRATIVE: CASE EVENT DATE: 20230406
